FAERS Safety Report 12233386 (Version 1)
Quarter: 2016Q2

REPORT INFORMATION
  Report Type: Not Available
  Country: SE (occurrence: SE)
  Receive Date: 20160404
  Receipt Date: 20160404
  Transmission Date: 20160815
  Serious: Yes (Other)
  Sender: FDA-Public Use
  Company Number: SE-BEH-2015057279

PATIENT
  Age: 34 Year
  Sex: Female

DRUGS (2)
  1. VIVAGLOBIN [Suspect]
     Active Substance: HUMAN IMMUNOGLOBULIN G
     Indication: HYPOGAMMAGLOBULINAEMIA
     Dosage: STARTING DOSE: 50 ML X 2/WEEK; STRENGTH:160 MG/ML; STOP DATE: ??-JUN-2012
     Dates: start: 20100923
  2. HIZENTRA [Suspect]
     Active Substance: HUMAN IMMUNOGLOBULIN G
     Indication: HYPOGAMMAGLOBULINAEMIA
     Dosage: STRENGTH: 200MG/ML; START DATE: ??-JUN-2012

REACTIONS (1)
  - Thrombocytopenia [Unknown]
